FAERS Safety Report 8203269-0 (Version None)
Quarter: 2012Q1

REPORT INFORMATION
  Report Type: 
  Country: None (occurrence: None)
  Receive Date: 20120312
  Receipt Date: 20120306
  Transmission Date: 20120608
  Serious: Yes (Death)
  Sender: FDA-Public Use
  Company Number: US-ASTRAZENECA-2012SE15340

PATIENT
  Age: 80 Year
  Sex: Male
  Weight: 45.4 kg

DRUGS (2)
  1. POTASSIUM [Concomitant]
  2. SEROQUEL [Suspect]
     Indication: DEMENTIA
     Route: 048
     Dates: start: 20110101, end: 20111001

REACTIONS (3)
  - DEMENTIA WITH LEWY BODIES [None]
  - AGITATION [None]
  - OFF LABEL USE [None]
